FAERS Safety Report 6134879-2 (Version None)
Quarter: 2009Q1

REPORT INFORMATION
  Report Type: 
  Country: None (occurrence: None)
  Receive Date: 20090327
  Receipt Date: 20090317
  Transmission Date: 20090719
  Serious: Yes (Other)
  Sender: FDA-Public Use
  Company Number: US-PFIZER INC-2009184844

PATIENT
  Sex: Female
  Weight: 103 kg

DRUGS (7)
  1. DEPO-PROVERA [Suspect]
     Dates: start: 20090123
  2. DARVOCET [Concomitant]
     Dosage: UNK
  3. HYDROCHLOROTHIAZIDE [Concomitant]
     Dosage: UNK
  4. ESTROGEN NOS [Concomitant]
     Dosage: UNK
  5. VITAMIN B-12 [Concomitant]
     Dosage: UNK
  6. SYNTHROID [Concomitant]
     Dosage: UNK
  7. PROZAC [Concomitant]
     Dosage: UNK

REACTIONS (7)
  - ATTENTION DEFICIT/HYPERACTIVITY DISORDER [None]
  - DYSPNOEA [None]
  - FLUID RETENTION [None]
  - MIGRAINE [None]
  - SYSTEMIC LUPUS ERYTHEMATOSUS [None]
  - WEIGHT INCREASED [None]
  - WRONG DRUG ADMINISTERED [None]
